FAERS Safety Report 4697587-0 (Version None)
Quarter: 2005Q2

REPORT INFORMATION
  Report Type: 
  Country: None (occurrence: None)
  Receive Date: 20050621
  Receipt Date: 20050603
  Transmission Date: 20051028
  Serious: Yes (Death, Hospitalization)
  Sender: FDA-Public Use
  Company Number: US_0411107732

PATIENT
  Age: 65 Year
  Sex: Male
  Weight: 98 kg

DRUGS (17)
  1. ZYPREXA [Suspect]
     Indication: MAJOR DEPRESSION
     Dosage: 50 MG /1 DAY
     Dates: start: 20010515, end: 20021004
  2. EFFEXOR [Concomitant]
  3. ZOLOFT (SRTRALINE HYDROCHLORIDE) [Concomitant]
  4. GEMFIBROZIL [Concomitant]
  5. NIASPAN [Concomitant]
  6. SERTRALINE HCL [Concomitant]
  7. ATENOLOL [Concomitant]
  8. COLCHICINE [Concomitant]
  9. NITRO-TABLINEN (ISOSORBIDE DINITRATE) [Concomitant]
  10. ALLOPURINOL [Concomitant]
  11. ALLEGRA [Concomitant]
  12. KCL (POTASSIUM CHLORIDE) [Concomitant]
  13. LISINOPRIL AND HYDROCHLOROTHIAZIDE [Concomitant]
  14. CELEBREX [Concomitant]
  15. DILTIAZEM CD (DILTIAZEM HYDROCHLORIDE) [Concomitant]
  16. LANSOPRAZOLE [Concomitant]
  17. CLONAZEPAM [Concomitant]

REACTIONS (8)
  - ANAEMIA [None]
  - BLOOD CHOLESTEROL ABNORMAL [None]
  - CARDIAC FAILURE CONGESTIVE [None]
  - DIABETES MELLITUS [None]
  - MAJOR DEPRESSION [None]
  - PNEUMONIA [None]
  - PRESCRIBED OVERDOSE [None]
  - PSYCHOTIC DISORDER [None]
